FAERS Safety Report 6059199-6 (Version None)
Quarter: 2009Q1

REPORT INFORMATION
  Report Type: 
  Country: None (occurrence: None)
  Receive Date: 20090128
  Receipt Date: 20090128
  Transmission Date: 20090719
  Serious: Yes (Hospitalization)
  Sender: FDA-Public Use
  Company Number: None

PATIENT
  Age: 55 Year
  Sex: Female

DRUGS (2)
  1. LOVENOX [Suspect]
     Indication: THROMBOSIS PROPHYLAXIS
     Dosage: 60MG Q12H SQ
     Route: 058
     Dates: end: 20080820
  2. KETOROLAC [Suspect]
     Indication: PAIN
     Dosage: 10MG Q6H IV BOLUS
     Route: 040
     Dates: start: 20080817, end: 20080818

REACTIONS (5)
  - GENERAL PHYSICAL HEALTH DETERIORATION [None]
  - PANCREATIC HAEMORRHAGE [None]
  - PANCREATIC PSEUDOCYST [None]
  - PANCREATITIS [None]
  - RETROPERITONEAL HAEMORRHAGE [None]
